FAERS Safety Report 4870347-3 (Version None)
Quarter: 2006Q1

REPORT INFORMATION
  Report Type: 
  Country: None (occurrence: None)
  Receive Date: 20060103
  Receipt Date: 20051116
  Transmission Date: 20060701
  Serious: Yes (Hospitalization)
  Sender: FDA-Public Use
  Company Number: US-BOEHRINGER INGELHEIM PHARMACEUTICALS, INC.-2005-BP-20377BP

PATIENT
  Age: 82 Year
  Sex: Female
  Weight: 60.78 kg

DRUGS (7)
  1. ATROVENT [Suspect]
     Indication: CHRONIC OBSTRUCTIVE PULMONARY DISEASE
     Route: 055
     Dates: start: 20000901
  2. AROMASIN [Suspect]
     Indication: BREAST CANCER
     Route: 048
     Dates: start: 20020417
  3. M.V.I. [Concomitant]
  4. VITAMIN E [Concomitant]
     Dates: start: 20000101
  5. FEMOVIRIN [Concomitant]
     Dates: start: 20000101
  6. ZOCOR [Concomitant]
     Dates: start: 20050401, end: 20050601
  7. ESTRA C [Concomitant]
     Dates: start: 20000101

REACTIONS (5)
  - ANAEMIA POSTOPERATIVE [None]
  - ATELECTASIS [None]
  - CARDIAC FAILURE CONGESTIVE [None]
  - HEPATIC MASS [None]
  - PYREXIA [None]
